FAERS Safety Report 4558834-9 (Version None)
Quarter: 2005Q1

REPORT INFORMATION
  Report Type: 
  Country: None (occurrence: None)
  Receive Date: 20050121
  Receipt Date: 20050120
  Transmission Date: 20050727
  Serious: Yes (Hospitalization)
  Sender: FDA-Public Use
  Company Number: FR-GLAXOSMITHKLINE-B0365066A

PATIENT
  Age: 68 Year
  Sex: Female
  Weight: 81 kg

DRUGS (10)
  1. CLAMOXYL [Suspect]
     Dosage: 10G PER DAY
     Route: 048
     Dates: start: 20041216, end: 20050107
  2. BITILDIEM [Suspect]
     Dosage: 1UNIT TWICE PER DAY
     Route: 048
     Dates: start: 20041209, end: 20050107
  3. BACTRIM [Concomitant]
     Dosage: 1UNIT PER DAY
     Route: 048
     Dates: start: 20041222, end: 20041227
  4. CIPROFLOXACIN [Concomitant]
     Route: 048
     Dates: start: 20041228
  5. BURINEX [Concomitant]
     Dosage: 1UNIT PER DAY
     Route: 048
     Dates: start: 20041209, end: 20050105
  6. COVERSYL [Concomitant]
     Route: 048
     Dates: start: 20041209, end: 20041227
  7. DAFALGAN [Concomitant]
     Route: 065
     Dates: start: 20041209
  8. GAVISCON [Concomitant]
     Route: 065
     Dates: start: 20041209
  9. OMEPRAZOLE [Concomitant]
     Route: 065
     Dates: start: 20041209
  10. KARDEGIC [Concomitant]
     Route: 065
     Dates: start: 20041209

REACTIONS (5)
  - ALANINE AMINOTRANSFERASE INCREASED [None]
  - ASPARTATE AMINOTRANSFERASE INCREASED [None]
  - BLOOD ALKALINE PHOSPHATASE [None]
  - BLOOD ALKALINE PHOSPHATASE INCREASED [None]
  - GAMMA-GLUTAMYLTRANSFERASE INCREASED [None]
